FAERS Safety Report 6698561-5 (Version None)
Quarter: 2010Q2

REPORT INFORMATION
  Report Type: 
  Country: None (occurrence: None)
  Receive Date: 20100427
  Receipt Date: 20100421
  Transmission Date: 20101027
  Serious: Yes (Death, Hospitalization)
  Sender: FDA-Public Use
  Company Number: JP-ASTRAZENECA-2010SE14813

PATIENT
  Age: 75 Year
  Sex: Male
  Weight: 63 kg

DRUGS (2)
  1. CANDESARTAN CILEXETIL [Suspect]
     Indication: HYPERTENSION
     Route: 048
     Dates: start: 20100115, end: 20100223
  2. NORVASC [Concomitant]
     Indication: HYPERTENSION
     Route: 048
     Dates: start: 20050930, end: 20100223

REACTIONS (1)
  - INTERSTITIAL LUNG DISEASE [None]
